FAERS Safety Report 15858618 (Version 1)
Quarter: 2019Q1

REPORT INFORMATION
  Report Type: Report from Study
  Country: US (occurrence: US)
  Receive Date: 20190123
  Receipt Date: 20190123
  Transmission Date: 20190417
  Serious: Yes (Other)
  Sender: FDA-Public Use
  Company Number: US-SAKK-2018SA285811AA

PATIENT
  Age: 52 Year
  Sex: Male

DRUGS (3)
  1. INSULIN GLARGINE/LIXISENATIDE [Suspect]
     Active Substance: INSULIN GLARGINE\LIXISENATIDE
     Dosage: 38 IU, UNK
     Route: 065
  2. METFORMIN [Concomitant]
     Active Substance: METFORMIN HYDROCHLORIDE
     Dosage: UNK UNK, UNK
     Route: 065
  3. INSULIN GLARGINE/LIXISENATIDE [Suspect]
     Active Substance: INSULIN GLARGINE\LIXISENATIDE
     Dosage: 33 U, UNK
     Route: 065
     Dates: start: 20180411

REACTIONS (8)
  - Nausea [Unknown]
  - Dizziness [Unknown]
  - Depressed level of consciousness [Unknown]
  - Blood glucose increased [Recovering/Resolving]
  - Abnormal behaviour [Unknown]
  - Feeling abnormal [Unknown]
  - Nervousness [Unknown]
  - Hypoglycaemia [Unknown]

NARRATIVE: CASE EVENT DATE: 20180411
